FAERS Safety Report 7222351-8 (Version None)
Quarter: 2010Q4

REPORT INFORMATION
  Report Type: 
  Country: None (occurrence: None)
  Receive Date: 20101126
  Receipt Date: 20100830
  Transmission Date: 20110411
  Serious: No
  Sender: FDA-Public Use
  Company Number: 313984

PATIENT
  Age: 67 Year
  Sex: Female

DRUGS (3)
  1. VICTOZA [Suspect]
     Indication: TYPE 2 DIABETES MELLITUS
     Dosage: 0.6  MG, QD, SUBCUTANEOUS, 1.2  MG, QD, SUBCUTANEOUS,
     Route: 058
     Dates: start: 20100625, end: 20100701
  2. VICTOZA [Suspect]
     Indication: TYPE 2 DIABETES MELLITUS
     Dosage: 0.6  MG, QD, SUBCUTANEOUS, 1.2  MG, QD, SUBCUTANEOUS,
     Route: 058
     Dates: start: 20100701, end: 20100801
  3. VICTOZA [Suspect]
     Indication: TYPE 2 DIABETES MELLITUS
     Dosage: 0.6  MG, QD, SUBCUTANEOUS, 1.2  MG, QD, SUBCUTANEOUS,
     Route: 058
     Dates: start: 20100801, end: 20100801

REACTIONS (2)
  - ABDOMINAL PAIN UPPER [None]
  - VOMITING [None]
